FAERS Safety Report 7405896-7 (Version None)
Quarter: 2011Q2

REPORT INFORMATION
  Report Type: 
  Country: None (occurrence: None)
  Receive Date: 20110411
  Receipt Date: 20110330
  Transmission Date: 20111010
  Serious: Yes (Other)
  Sender: FDA-Public Use
  Company Number: DE-PFIZER INC-DE-WYE-H10325609

PATIENT
  Age: 23 Year
  Sex: Female
  Weight: 69 kg

DRUGS (7)
  1. ZYPREXA [Suspect]
     Indication: DEPRESSION
     Dosage: 5 MG, UNK
     Route: 048
     Dates: start: 20090610, end: 20090614
  2. AGOMELATINE [Suspect]
     Indication: DEPRESSION
     Dosage: 25 MG, UNK
     Route: 048
     Dates: start: 20090605, end: 20090626
  3. ATOSIL [Suspect]
     Indication: DEPRESSION
     Dosage: 25 MG, UNK
     Route: 048
     Dates: start: 20090604, end: 20090609
  4. MIRTAZAPINE [Suspect]
     Indication: DEPRESSION
     Dosage: 15 MG, UNK
     Route: 048
     Dates: start: 20090608, end: 20090609
  5. PANTOZOL [Suspect]
     Dosage: 80.0 MG, 1X/DAY
     Route: 048
     Dates: start: 20090604
  6. AMOXICILLIN [Suspect]
     Indication: DEPRESSION
     Dosage: 2000 MG, UNK
     Route: 048
     Dates: start: 20090615, end: 20090621
  7. KLACID [Suspect]
     Indication: DEPRESSION
     Dosage: 1000 MG, UNK
     Route: 048
     Dates: start: 20090615, end: 20090621

REACTIONS (3)
  - BREAST ENLARGEMENT [None]
  - BREAST DISCOMFORT [None]
  - BLOOD PROLACTIN INCREASED [None]
